FAERS Safety Report 6917742-6 (Version None)
Quarter: 2010Q3

REPORT INFORMATION
  Report Type: 
  Country: None (occurrence: None)
  Receive Date: 20100810
  Receipt Date: 20100805
  Transmission Date: 20110219
  Serious: Yes (Death)
  Sender: FDA-Public Use
  Company Number: US-CELGENEUS-163-21880-10080504

PATIENT
  Sex: Male

DRUGS (3)
  1. REVLIMID [Suspect]
     Indication: MULTIPLE MYELOMA
     Route: 048
     Dates: start: 20061201
  2. REVLIMID [Suspect]
     Route: 048
     Dates: start: 20071101
  3. REVLIMID [Suspect]
     Route: 048
     Dates: start: 20080301, end: 20080701

REACTIONS (2)
  - DEATH [None]
  - HEADACHE [None]
